FAERS Safety Report 6536312-5 (Version None)
Quarter: 2010Q1

REPORT INFORMATION
  Report Type: 
  Country: None (occurrence: None)
  Receive Date: 20100113
  Receipt Date: 20091124
  Transmission Date: 20100710
  Serious: No
  Sender: FDA-Public Use
  Company Number: US-ALLERGAN-0916377US

PATIENT
  Age: 42 Year
  Sex: Female

DRUGS (2)
  1. LATISSE [Suspect]
     Indication: GROWTH OF EYELASHES
     Dosage: 2 GTT, BID
     Route: 061
  2. LATISSE [Suspect]
     Dosage: 1 GTT, QHS
     Route: 061

REACTIONS (4)
  - DRUG ADMINISTRATION ERROR [None]
  - EYE IRRITATION [None]
  - EYE PRURITUS [None]
  - OCULAR HYPERAEMIA [None]
